FAERS Safety Report 7866386-0 (Version None)
Quarter: 2011Q4

REPORT INFORMATION
  Report Type: 
  Country: None (occurrence: None)
  Receive Date: 20111028
  Receipt Date: 20110608
  Transmission Date: 20120403
  Serious: No
  Sender: FDA-Public Use
  Company Number: US-GLAXOSMITHKLINE-A0930777A

PATIENT
  Age: 76 Year
  Sex: Female

DRUGS (5)
  1. THYROID MEDICATION [Concomitant]
  2. ADVAIR DISKUS 100/50 [Suspect]
     Indication: CHRONIC OBSTRUCTIVE PULMONARY DISEASE
     Dosage: 1PUFF TWICE PER DAY
     Route: 055
     Dates: start: 20110524
  3. BLOOD PRESSURE MED [Concomitant]
  4. VICODIN [Concomitant]
  5. ZOCOR [Concomitant]

REACTIONS (1)
  - RASH MACULAR [None]
